FAERS Safety Report 7103975 (Version 5)
Quarter: 2012Q4

REPORT INFORMATION
  Report Type: Spontaneous
  Country: NZ (occurrence: None)
  Receive Date: 20090819
  Receipt Date: 20120905
  Transmission Date: 20130627
  Serious: Yes (Other)
  Sender: FDA-Public Use
  Company Number: 2009-03214

PATIENT
  Age: 71 Year
  Sex: Male
  Weight: 87 kg

DRUGS (8)
  1. VELCADE [Suspect]
     Indication: MULTIPLE MYELOMA
     Route: 042
     Dates: start: 20070807, end: 20090526
  2. DEXAMETHASONE [Suspect]
     Indication: MULTIPLE MYELOMA
     Dates: start: 20090526, end: 20090527
  3. SULFAMETHOXAZOLE AND TRIMETHOPRIM [Concomitant]
  4. ACYCLOVIR [Concomitant]
  5. DOMPERIDONE (DOMPERIDONE) [Concomitant]
  6. IMODIUM [Concomitant]
  7. CODEINE PHOSPHATE (CODEINE PHOSPHATE) [Concomitant]
  8. ERYTHROMYCIN [Concomitant]

REACTIONS (2)
  - Myelodysplastic syndrome [None]
  - Thrombocytopenia [None]
